FAERS Safety Report 6751758-8 (Version None)
Quarter: 2010Q2

REPORT INFORMATION
  Report Type: 
  Country: None (occurrence: None)
  Receive Date: 20100602
  Receipt Date: 20100519
  Transmission Date: 20101027
  Serious: Yes (Other)
  Sender: FDA-Public Use
  Company Number: PHHY2010VE32878

PATIENT
  Sex: Female

DRUGS (1)
  1. GLEEVEC [Suspect]
     Indication: CHRONIC MYELOID LEUKAEMIA
     Dosage: 400 MG ONCE A DAY (SHE TOOK 4 TABLETS OF GLIVEC 100 MG AT NOON)
     Route: 048
     Dates: start: 20060929

REACTIONS (7)
  - CYSTITIS [None]
  - CYSTITIS NONINFECTIVE [None]
  - EYELID OEDEMA [None]
  - LOCAL SWELLING [None]
  - MALAISE [None]
  - MUSCLE SPASMS [None]
  - NAUSEA [None]
